FAERS Safety Report 9871998 (Version 2)
Quarter: 2014Q1

REPORT INFORMATION
  Report Type: Spontaneous
  Country: US (occurrence: US)
  Receive Date: 20140205
  Receipt Date: 20140205
  Transmission Date: 20141002
  Serious: Yes (Hospitalization)
  Sender: FDA-Public Use
  Company Number: US-B.I. PHARMACEUTICALS,INC./RIDGEFIELD-2013-BI-31347BP

PATIENT
  Sex: Male
  Weight: 90.72 kg

DRUGS (8)
  1. PRADAXA [Suspect]
     Indication: ATRIAL FIBRILLATION
     Dosage: 300 MG
     Route: 048
     Dates: start: 20110706, end: 20111004
  2. PRILOSEC [Concomitant]
     Dosage: 20 MG
     Route: 048
  3. ZOCOR [Concomitant]
     Dosage: 40 MG
     Route: 048
  4. ZOVIRAX [Concomitant]
     Dosage: 1200 MG
     Route: 048
  5. OMEGA 3 FATTY ACIDS [Concomitant]
     Dosage: 500 MG
     Route: 048
  6. MULTIVITAMIN [Concomitant]
     Dosage: ONE TABLET DAILY
     Route: 048
  7. VITAMIN D3 [Concomitant]
     Dosage: 400 U
     Route: 048
  8. VITAMIN C [Concomitant]
     Dosage: 500 MG
     Route: 048

REACTIONS (1)
  - Rectal haemorrhage [Unknown]
